FAERS Safety Report 25634923 (Version 2)
Quarter: 2025Q3

REPORT INFORMATION
  Report Type: Report from Study
  Country: US (occurrence: US)
  Receive Date: 20250801
  Receipt Date: 20250908
  Transmission Date: 20251020
  Serious: Yes (Other)
  Sender: ABBVIE
  Company Number: US-ABBVIE-6395718

PATIENT
  Sex: Male

DRUGS (1)
  1. RINVOQ [Suspect]
     Active Substance: UPADACITINIB
     Indication: Eczema
     Dosage: STRENGTH: 15MG. DOSE FORM: EXTENDED RELEASE TABLET
     Route: 048
     Dates: start: 202410

REACTIONS (2)
  - Aortic occlusion [Unknown]
  - Collateral circulation [Unknown]
